FAERS Safety Report 13126284 (Version 1)
Quarter: 2017Q1

REPORT INFORMATION
  Report Type: Spontaneous
  Country: CA (occurrence: CA)
  Receive Date: 20170118
  Receipt Date: 20170118
  Transmission Date: 20170428
  Serious: Yes (Other)
  Sender: FDA-Public Use
  Company Number: CA-PFIZER INC-2017019793

PATIENT
  Age: 89 Year
  Sex: Male

DRUGS (1)
  1. EPINEPHRINE. [Suspect]
     Active Substance: EPINEPHRINE
     Indication: GASTROINTESTINAL HAEMORRHAGE
     Dosage: INJECTION OF A 1:10,000 SOLUTION BOLUSES OF 2 ML WERE USED FOR A TOTAL OF 8 ML

REACTIONS (2)
  - Gastrointestinal ischaemia [Unknown]
  - Gastrointestinal mucosal necrosis [Unknown]
